FAERS Safety Report 21372967 (Version 1)
Quarter: 2022Q3

REPORT INFORMATION
  Report Type: Report from Study
  Country: US (occurrence: US)
  Receive Date: 20220924
  Receipt Date: 20220924
  Transmission Date: 20221027
  Serious: Yes (Other)
  Sender: FDA-Public Use
  Company Number: None

PATIENT
  Sex: Male

DRUGS (1)
  1. VENCLEXTA [Suspect]
     Active Substance: VENETOCLAX
     Indication: Leukaemia
     Route: 048

REACTIONS (7)
  - Pulmonary aplasia [Unknown]
  - Skin disorder [Unknown]
  - Confusional state [Unknown]
  - Diabetes mellitus [Unknown]
  - COVID-19 [Unknown]
  - Rash macular [Unknown]
  - Leukaemia [Unknown]
